FAERS Safety Report 4452006-4 (Version None)
Quarter: 2004Q3

REPORT INFORMATION
  Report Type: 
  Country: None (occurrence: None)
  Receive Date: 20040915
  Receipt Date: 20040915
  Transmission Date: 20050211
  Serious: Yes (Hospitalization)
  Sender: FDA-Public Use
  Company Number: None

PATIENT
  Age: 80 Year
  Sex: Female
  Weight: 60.3 kg

DRUGS (9)
  1. TRIAMTERENE AND HYDROCHLOROTHIAZIDE [Suspect]
     Indication: HYPERTENSION
     Dosage: 37.5/25 ONE QD
     Dates: start: 20030417
  2. OMEPRAZOLE [Concomitant]
  3. TRAZODONE [Concomitant]
  4. DIOVAN [Concomitant]
  5. NORVASC [Concomitant]
  6. TRICOR [Concomitant]
  7. LIPITOR [Concomitant]
  8. CALCIUM W/D [Concomitant]
  9. VIT E [Concomitant]

REACTIONS (7)
  - BLOOD SODIUM DECREASED [None]
  - DEHYDRATION [None]
  - DISORIENTATION [None]
  - DIZZINESS [None]
  - LETHARGY [None]
  - NAUSEA [None]
  - VOMITING [None]
